FAERS Safety Report 21768645 (Version 3)
Quarter: 2023Q2

REPORT INFORMATION
  Report Type: Spontaneous
  Country: US (occurrence: US)
  Receive Date: 20221222
  Receipt Date: 20230508
  Transmission Date: 20230721
  Serious: Yes (Other)
  Sender: FDA-Public Use
  Company Number: US-BAYER-2022P031857

PATIENT
  Age: 27 Year
  Sex: Male

DRUGS (3)
  1. KOGENATE FS [Suspect]
     Active Substance: ANTIHEMOPHILIC FACTOR, HUMAN RECOMBINANT
     Indication: Prophylaxis
     Dosage: 2000 U, QOD (+/- 10%)
  2. KOGENATE FS [Suspect]
     Active Substance: ANTIHEMOPHILIC FACTOR, HUMAN RECOMBINANT
     Indication: Intermenstrual bleeding
     Dosage: 1 DF, ONCE (TO TREAT RIGHT ELBOW AND RIGHT WRIST BLEED)
     Dates: start: 20221207, end: 20221207
  3. KOGENATE FS [Suspect]
     Active Substance: ANTIHEMOPHILIC FACTOR, HUMAN RECOMBINANT
     Indication: Prophylaxis
     Dosage: 1 DF, ONCE (TO TREAT RIGHT ELBOW BLEED)
     Dates: start: 20230504, end: 20230504

REACTIONS (3)
  - Haemarthrosis [None]
  - Haemarthrosis [None]
  - Haemarthrosis [Not Recovered/Not Resolved]

NARRATIVE: CASE EVENT DATE: 20221207
